FAERS Safety Report 5684477-X (Version None)
Quarter: 2008Q1

REPORT INFORMATION
  Report Type: 
  Country: None (occurrence: None)
  Receive Date: 20080327
  Receipt Date: 20080327
  Transmission Date: 20080703
  Serious: No
  Sender: FDA-Public Use
  Company Number: None

PATIENT
  Sex: Female

DRUGS (3)
  1. THEO-DUR [Suspect]
     Indication: ASTHMA
     Dosage: 400MG 1 PO Q AM PO
     Route: 048
     Dates: start: 19980101, end: 19980201
  2. THEO-DUR [Suspect]
     Indication: CHRONIC OBSTRUCTIVE PULMONARY DISEASE
     Dosage: 400MG 1 PO Q AM PO
     Route: 048
     Dates: start: 19980101, end: 19980201
  3. THEOPHYLLINE [Concomitant]

REACTIONS (4)
  - DYSPNOEA [None]
  - NAUSEA [None]
  - STOMACH DISCOMFORT [None]
  - VOMITING [None]
